FAERS Safety Report 9174392 (Version 1)
Quarter: 2013Q1

REPORT INFORMATION
  Report Type: Spontaneous
  Country: GB (occurrence: None)
  Receive Date: 20130313
  Receipt Date: 20130313
  Transmission Date: 20140127
  Serious: Yes (Other)
  Sender: FDA-Public Use
  Company Number: AUR-APL-2013-02009

PATIENT
  Age: 27 Year
  Sex: Male
  Weight: 68 kg

DRUGS (5)
  1. RIBAVIRIN (RIBAVIRIN) [Suspect]
     Indication: PRODUCT USED FOR UNKNOWN INDICATION
     Dosage: (400 MG,2 IN 1 D)
     Route: 048
     Dates: start: 20130104, end: 20130122
  2. INCIVO (TELAPREVIR) [Suspect]
     Indication: HEPATITIS
     Dosage: (750 MG, 3 IN 1 D)
     Route: 048
     Dates: start: 20130104
  3. E45 ITCH RELIEF (E45 ITCH RELIEF) [Concomitant]
  4. PEGINTERFERON ALFA-2B (PEGINTERFERON ALFA-2B) [Concomitant]
  5. SUBUTEX (BUPRENORPHINE HYDROCHLORIDE) [Concomitant]

REACTIONS (8)
  - Diarrhoea [None]
  - Nausea [None]
  - Vomiting [None]
  - Decreased appetite [None]
  - Anal pruritus [None]
  - Haemorrhoids [None]
  - Scab [None]
  - Anaemia [None]
